FAERS Safety Report 17502450 (Version 2)
Quarter: 2020Q2

REPORT INFORMATION
  Report Type: Report from Study
  Country: US (occurrence: US)
  Receive Date: 20200305
  Receipt Date: 20200630
  Transmission Date: 20200713
  Serious: Yes (Hospitalization)
  Sender: FDA-Public Use
  Company Number: US-PFIZER INC-2020085072

PATIENT
  Age: 5 Year
  Sex: Female
  Weight: 16.8 kg

DRUGS (5)
  1. DACTINOMYCIN [Suspect]
     Active Substance: DACTINOMYCIN
     Indication: EMBRYONAL RHABDOMYOSARCOMA
     Dosage: 0.05 MG/KG, (MAX DOSE 2.5MG) IV OVER 1-5 MINUTES ON DAY 1 OF CYCLES 1,3,5
     Route: 042
  2. CAMPTOSAR [Suspect]
     Active Substance: IRINOTECAN HYDROCHLORIDE
     Indication: EMBRYONAL RHABDOMYOSARCOMA
     Dosage: 50MG/M2 (MAX DOSE 100 MG) IV OVER 90 MINUTES ON DAYS 1-5 OF CYCLES 2,4,6,7,9,11
     Route: 042
     Dates: end: 20200127
  3. CYCLOPHOSPHAMIDE. [Suspect]
     Active Substance: CYCLOPHOSPHAMIDE
     Indication: EMBRYONAL RHABDOMYOSARCOMA
     Dosage: 1200 MG/M2, IV OVER 60 MINUTES ON DAY 1 OF CYCLES 1,3,5,8,10
     Route: 042
  4. TEMSIROLIMUS. [Suspect]
     Active Substance: TEMSIROLIMUS
     Indication: EMBRYONAL RHABDOMYOSARCOMA
     Dosage: 15MG/M2 (MAX DOSE 25MG) OR 0.5 MG/KG IV OVER 30-60 MINUTES ON DAYS 1,8,15 OF CYCLES 1-4,8,9,10,11
     Route: 042
     Dates: end: 20200130
  5. VINCRISTINE SULFATE. [Suspect]
     Active Substance: VINCRISTINE SULFATE
     Indication: EMBRYONAL RHABDOMYOSARCOMA
     Dosage: 1.5MG/M2(MAX DOSE 2MG) ON DAYS1,8,15 OF CYCLES1-4,8,11,DAY1 OF CYCLES 5,10, DAY 1,8 OF CYCLES 6,7,9
     Route: 042
     Dates: end: 20200130

REACTIONS (1)
  - Gastritis [Recovering/Resolving]

NARRATIVE: CASE EVENT DATE: 20200206
